FAERS Safety Report 12203011 (Version 1)
Quarter: 2016Q1

REPORT INFORMATION
  Report Type: Spontaneous
  Country: IN (occurrence: IN)
  Receive Date: 20160323
  Receipt Date: 20160323
  Transmission Date: 20160526
  Serious: Yes (Other)
  Sender: FDA-Public Use
  Company Number: IN-009507513-1603IND009654

PATIENT
  Age: 62 Year
  Sex: Male
  Weight: 70 kg

DRUGS (1)
  1. JANUVIA [Suspect]
     Active Substance: SITAGLIPTIN PHOSPHATE
     Indication: DIABETES MELLITUS
     Dosage: 1 TABLET/DAY
     Route: 048

REACTIONS (1)
  - Neoplasm malignant [Unknown]
